FAERS Safety Report 18336657 (Version 3)
Quarter: 2020Q4

REPORT INFORMATION
  Report Type: Spontaneous
  Country: SE (occurrence: SE)
  Receive Date: 20201001
  Receipt Date: 20201022
  Transmission Date: 20210113
  Serious: Yes (Other)
  Sender: FDA-Public Use
  Company Number: SE-SA-2020SA265034

PATIENT

DRUGS (1)
  1. TOUJEO DOUBLESTAR [Suspect]
     Active Substance: INSULIN GLARGINE
     Indication: DIABETES MELLITUS
     Dosage: 68 IU, QD, IN THE MORNING
     Route: 065

REACTIONS (4)
  - Incorrect dose administered [Unknown]
  - Feeling drunk [Unknown]
  - Blood glucose decreased [Unknown]
  - Loss of consciousness [Unknown]

NARRATIVE: CASE EVENT DATE: 202008
